FAERS Safety Report 23158918 (Version 1)
Quarter: 2023Q4

REPORT INFORMATION
  Report Type: Spontaneous
  Country: US (occurrence: None)
  Receive Date: 20231107
  Receipt Date: 20231107
  Transmission Date: 20240109
  Serious: Yes (unspecified)
  Sender: FDA-Public Use
  Company Number: None

PATIENT
  Age: 3 Week
  Sex: Male
  Weight: 3.15 kg

DRUGS (2)
  1. NIRSEVIMAB [Suspect]
     Active Substance: NIRSEVIMAB
     Indication: Antiviral prophylaxis
     Dates: start: 20231011
  2. Vitamin D drops [Concomitant]

REACTIONS (2)
  - Underweight [None]
  - Failure to thrive [None]

NARRATIVE: CASE EVENT DATE: 20231011
